FAERS Safety Report 24717733 (Version 1)
Quarter: 2024Q4

REPORT INFORMATION
  Report Type: Spontaneous
  Country: GB (occurrence: GB)
  Receive Date: 20241210
  Receipt Date: 20241210
  Transmission Date: 20250115
  Serious: Yes (Hospitalization, Disabling, Other)
  Sender: PFIZER
  Company Number: None

PATIENT
  Age: 65 Year
  Sex: Male
  Weight: 103 kg

DRUGS (4)
  1. TOFACITINIB CITRATE [Suspect]
     Active Substance: TOFACITINIB CITRATE
     Indication: Crohn^s disease
     Dosage: 5 MG, 2X/DAY
     Dates: start: 20231117, end: 20241127
  2. ATORVASTATIN [Concomitant]
     Active Substance: ATORVASTATIN
  3. INSULIN GLARGINE [Concomitant]
     Active Substance: INSULIN GLARGINE
     Indication: Diabetes mellitus
  4. METFORMIN [Concomitant]
     Active Substance: METFORMIN HYDROCHLORIDE
     Indication: Diabetes mellitus

REACTIONS (3)
  - Cerebrovascular accident [Recovering/Resolving]
  - Seizure [Unknown]
  - Off label use [Unknown]

NARRATIVE: CASE EVENT DATE: 20231117
